FAERS Safety Report 4388630-7 (Version None)
Quarter: 2004Q2

REPORT INFORMATION
  Report Type: 
  Country: None (occurrence: None)
  Receive Date: 20040624
  Receipt Date: 20040607
  Transmission Date: 20050107
  Serious: Yes (Hospitalization)
  Sender: FDA-Public Use
  Company Number: B0335075A

PATIENT
  Age: 15 Year
  Sex: Female

DRUGS (3)
  1. WELLBUTRIN SR [Suspect]
     Indication: ATTENTION DEFICIT/HYPERACTIVITY DISORDER
     Dosage: INTRANASAL
     Route: 045
  2. SALBUTAMOL SULPHATE [Concomitant]
  3. CANNABIS [Concomitant]

REACTIONS (13)
  - AGGRESSION [None]
  - ANGER [None]
  - ATTENTION DEFICIT/HYPERACTIVITY DISORDER [None]
  - CONDITION AGGRAVATED [None]
  - DRUG ABUSER [None]
  - FEELING ABNORMAL [None]
  - IMPULSIVE BEHAVIOUR [None]
  - IRRITABILITY [None]
  - MEDICATION ERROR [None]
  - RESTLESSNESS [None]
  - SUICIDAL IDEATION [None]
  - THEFT [None]
  - TREATMENT NONCOMPLIANCE [None]
